FAERS Safety Report 9949458 (Version 1)
Quarter: 2014Q1

REPORT INFORMATION
  Report Type: Spontaneous
  Country: US (occurrence: US)
  Receive Date: 20140304
  Receipt Date: 20140304
  Transmission Date: 20141002
  Serious: No
  Sender: FDA-Public Use
  Company Number: US-PFIZER INC-2014060210

PATIENT
  Sex: Female

DRUGS (2)
  1. CELEBREX [Suspect]
     Indication: ARTHRALGIA
     Dosage: UNK
     Dates: start: 2004, end: 2014
  2. CELEBREX [Suspect]
     Dosage: UNK
     Dates: start: 2014

REACTIONS (2)
  - Local swelling [Unknown]
  - Joint swelling [Unknown]
